FAERS Safety Report 17564856 (Version 1)
Quarter: 2020Q1

REPORT INFORMATION
  Report Type: Spontaneous
  Country: US (occurrence: US)
  Receive Date: 20200320
  Receipt Date: 20200320
  Transmission Date: 20200409
  Serious: No
  Sender: FDA-Public Use
  Company Number: US-SA-2020SA071431

PATIENT
  Age: 65 Year
  Sex: Female

DRUGS (8)
  1. DOXYCYCLINE MONOHYDRATE [Concomitant]
     Active Substance: DOXYCYCLINE
  2. METHYLPRED [Concomitant]
     Active Substance: METHYLPREDNISOLONE
  3. MUPIROCIN. [Concomitant]
     Active Substance: MUPIROCIN
  4. APAP [Concomitant]
     Active Substance: ACETAMINOPHEN
  5. VENTOLIN HFA [Concomitant]
     Active Substance: ALBUTEROL SULFATE
  6. IBUPROFEN. [Concomitant]
     Active Substance: IBUPROFEN
  7. LEVOFLOXACIN. [Concomitant]
     Active Substance: LEVOFLOXACIN
  8. KEVZARA [Suspect]
     Active Substance: SARILUMAB
     Dosage: 200 MG, QOW
     Route: 058
     Dates: start: 20190410

REACTIONS (2)
  - Dyskinesia [Recovered/Resolved]
  - Abdominal pain upper [Recovered/Resolved]
